FAERS Safety Report 19439537 (Version 1)
Quarter: 2021Q2

REPORT INFORMATION
  Report Type: Spontaneous
  Country: TW (occurrence: TW)
  Receive Date: 20210618
  Receipt Date: 20210618
  Transmission Date: 20210717
  Serious: Yes (Hospitalization, Other)
  Sender: FDA-Public Use
  Company Number: TW-LEADINGPHARMA-TW-2021LEALIT00194

PATIENT
  Age: 24 Year
  Sex: Male

DRUGS (3)
  1. CARBIMAZOLE [Concomitant]
     Active Substance: CARBIMAZOLE
     Indication: PRIMARY HYPERTHYROIDISM
     Route: 065
  2. KCL [Interacting]
     Active Substance: POTASSIUM CHLORIDE
     Indication: HYPOKALAEMIA
     Route: 065
  3. FUROSEMIDE. [Suspect]
     Active Substance: FUROSEMIDE
     Indication: BODY DYSMORPHIC DISORDER
     Dosage: DAILY
     Route: 065

REACTIONS (4)
  - Product use in unapproved indication [None]
  - Hypokalaemia [Unknown]
  - Intentional product misuse [None]
  - Paralysis [Unknown]
